FAERS Safety Report 20975939 (Version 1)
Quarter: 2022Q2

REPORT INFORMATION
  Report Type: Spontaneous
  Country: US (occurrence: US)
  Receive Date: 20220617
  Receipt Date: 20220617
  Transmission Date: 20220720
  Serious: Yes (Hospitalization, Other)
  Sender: FDA-Public Use
  Company Number: US-REGENERON PHARMACEUTICALS, INC.-2022-077857

PATIENT
  Age: 64 Year
  Sex: Female

DRUGS (2)
  1. EYLEA [Suspect]
     Active Substance: AFLIBERCEPT
     Indication: Diabetic retinal oedema
     Dosage: STARTED ABOUT 8-10 YEARS AGO, EVERY 8-10 WEEKS, LEFT EYE, INJECTION
     Dates: end: 20220405
  2. EYLEA [Suspect]
     Active Substance: AFLIBERCEPT
     Dosage: STARTED ABOUT 8-10 YEARS AGO, EVERY 8-10 WEEKS, RIGHT EYE, INJECTION

REACTIONS (6)
  - Limb injury [Unknown]
  - Eye haemorrhage [Not Recovered/Not Resolved]
  - Coronary artery occlusion [Not Recovered/Not Resolved]
  - Product dose omission issue [Unknown]
  - Visual impairment [Not Recovered/Not Resolved]
  - Vitreous floaters [Not Recovered/Not Resolved]

NARRATIVE: CASE EVENT DATE: 20220101
